FAERS Safety Report 17012374 (Version 2)
Quarter: 2020Q1

REPORT INFORMATION
  Report Type: Report from Study
  Country: CA (occurrence: CA)
  Receive Date: 20191108
  Receipt Date: 20200117
  Transmission Date: 20200409
  Serious: Yes (Hospitalization)
  Sender: FDA-Public Use
  Company Number: CA-ACTELION-A-NJ2019-197302

PATIENT
  Age: 57 Year
  Sex: Male
  Weight: 74.38 kg

DRUGS (14)
  1. CARIPUL [Suspect]
     Active Substance: EPOPROSTENOL
     Dosage: 30000 NG/ML
     Route: 042
  2. TRACLEER [Concomitant]
     Active Substance: BOSENTAN
     Indication: PULMONARY ARTERIAL HYPERTENSION
     Dosage: 125 MG, BID
     Dates: start: 201909
  3. BISOPROLOL [Concomitant]
     Active Substance: BISOPROLOL
  4. ROSUVASTATIN. [Concomitant]
     Active Substance: ROSUVASTATIN
  5. WARFIN [Concomitant]
     Active Substance: WARFARIN
     Dosage: UNK
     Dates: start: 201909
  6. ALENDRONATE [Concomitant]
     Active Substance: ALENDRONATE SODIUM
  7. FERROUS GLUCONATE [Concomitant]
     Active Substance: FERROUS GLUCONATE
  8. SILDENAFIL. [Concomitant]
     Active Substance: SILDENAFIL
     Dosage: 20 MG, TID
     Dates: start: 201909
  9. ADVAIR HFA [Concomitant]
     Active Substance: FLUTICASONE PROPIONATE\SALMETEROL XINAFOATE
  10. PANTOPRAZOLE [Concomitant]
     Active Substance: PANTOPRAZOLE
  11. CARIPUL [Suspect]
     Active Substance: EPOPROSTENOL
     Indication: PULMONARY ARTERIAL HYPERTENSION
     Dosage: 15000 NG/ML
     Route: 042
     Dates: start: 20190923
  12. CARIPUL [Suspect]
     Active Substance: EPOPROSTENOL
     Dosage: 20 NG/KG, PER MIN
     Route: 042
     Dates: start: 20190927
  13. DIGOXIN. [Concomitant]
     Active Substance: DIGOXIN
  14. LASIX [Concomitant]
     Active Substance: FUROSEMIDE

REACTIONS (11)
  - Cold sweat [Unknown]
  - Back pain [Not Recovered/Not Resolved]
  - Malaise [Unknown]
  - Oedema peripheral [Unknown]
  - Pain in extremity [Not Recovered/Not Resolved]
  - Lung transplant [Unknown]
  - Right ventricular failure [Unknown]
  - Loss of consciousness [Unknown]
  - Headache [Not Recovered/Not Resolved]
  - Condition aggravated [Unknown]
  - Chest pain [Unknown]

NARRATIVE: CASE EVENT DATE: 201909
